FAERS Safety Report 9068657 (Version 1)
Quarter: 2013Q1

REPORT INFORMATION
  Report Type: Spontaneous
  Country: US (occurrence: None)
  Receive Date: 20130212
  Receipt Date: 20130212
  Transmission Date: 20140127
  Serious: Yes (Other)
  Sender: FDA-Public Use
  Company Number: None

PATIENT
  Age: 31 Year
  Sex: Female
  Weight: 80 kg

DRUGS (1)
  1. ALLI [Suspect]
     Indication: WEIGHT DECREASED
     Route: 048
     Dates: start: 20121215, end: 20130101

REACTIONS (6)
  - Hypersensitivity [None]
  - Swollen tongue [None]
  - Throat tightness [None]
  - Feeling hot [None]
  - Swelling face [None]
  - Dyspnoea [None]
